FAERS Safety Report 15101049 (Version 1)
Quarter: 2018Q3

REPORT INFORMATION
  Report Type: Spontaneous
  Country: US (occurrence: US)
  Receive Date: 20180703
  Receipt Date: 20180703
  Transmission Date: 20181010
  Serious: No
  Sender: FDA-Public Use
  Company Number: US-PFIZER INC-2018266159

PATIENT

DRUGS (1)
  1. GABAPENTIN. [Suspect]
     Active Substance: GABAPENTIN
     Dosage: UNK

REACTIONS (7)
  - Tonsillar inflammation [Recovering/Resolving]
  - Malaise [Recovering/Resolving]
  - Lung disorder [Recovering/Resolving]
  - Gastric disorder [Recovering/Resolving]
  - Product quality issue [Unknown]
  - Poor quality drug administered [Unknown]
  - Pharyngeal disorder [Recovering/Resolving]
